FAERS Safety Report 5975041-3 (Version None)
Quarter: 2008Q4

REPORT INFORMATION
  Report Type: 
  Country: None (occurrence: None)
  Receive Date: 20081128
  Receipt Date: 20081124
  Transmission Date: 20090506
  Serious: Yes (Other)
  Sender: FDA-Public Use
  Company Number: 2008SP011896

PATIENT
  Sex: Male
  Weight: 72.2 kg

DRUGS (3)
  1. VIRAFERONPEG [Suspect]
     Indication: HEPATITIS C
     Dosage: 36 MCG;QW;SC
     Route: 058
     Dates: start: 20071112
  2. REBETOL [Suspect]
     Dosage: 1000 MG;QD;PO
     Route: 048
     Dates: start: 20071112
  3. ACETAMINOPHEN [Concomitant]

REACTIONS (1)
  - CYTOLYTIC HEPATITIS [None]
